FAERS Safety Report 20529494 (Version 5)
Quarter: 2022Q2

REPORT INFORMATION
  Report Type: Spontaneous
  Country: CA (occurrence: CA)
  Receive Date: 20220228
  Receipt Date: 20220510
  Transmission Date: 20220721
  Serious: Yes (Other)
  Sender: FDA-Public Use
  Company Number: CA-CELLTRION INC.-2021CA016013

PATIENT

DRUGS (19)
  1. INFLIXIMAB [Suspect]
     Active Substance: INFLIXIMAB
     Indication: Rheumatoid arthritis
     Dosage: 120 MG/ML Q2WEEKS SUBCUTANEOUSLY
     Route: 058
     Dates: start: 20211118
  2. INFLIXIMAB [Suspect]
     Active Substance: INFLIXIMAB
     Dosage: 120 MG/ML Q2WEEKS SUBCUTANEOUSLY (2ND DOSE)
     Route: 058
     Dates: start: 20211201
  3. INFLIXIMAB [Suspect]
     Active Substance: INFLIXIMAB
     Dosage: 120 MG/ML Q2WEEKS
     Route: 058
     Dates: start: 20211217
  4. INFLIXIMAB [Suspect]
     Active Substance: INFLIXIMAB
     Dosage: UNK
     Route: 058
     Dates: start: 20220211
  5. BUPROPION [Concomitant]
     Active Substance: BUPROPION
  6. CETIRIZINE [Concomitant]
     Active Substance: CETIRIZINE HYDROCHLORIDE
  7. FERROUS FUMARATE [Concomitant]
     Active Substance: FERROUS FUMARATE
  8. FOLIC ACID [Concomitant]
     Active Substance: FOLIC ACID
  9. NIFEDIPINE [Concomitant]
     Active Substance: NIFEDIPINE
  10. RANITIDINE [Concomitant]
     Active Substance: RANITIDINE
  11. ROSUVASTATIN [Concomitant]
     Active Substance: ROSUVASTATIN
  12. SUCRALFATE [Concomitant]
     Active Substance: SUCRALFATE
  13. TELMISARTAN [Concomitant]
     Active Substance: TELMISARTAN
  14. VITAMIN B12 [Concomitant]
     Active Substance: CYANOCOBALAMIN
  15. VITAMIN D [Concomitant]
     Active Substance: VITAMIN D NOS
  16. OZEMPIC [Concomitant]
     Active Substance: SEMAGLUTIDE
  17. METHOTREXATE [Concomitant]
     Active Substance: METHOTREXATE
     Dosage: UNK
     Dates: start: 2020
  18. TRANEXAMIC ACID [Concomitant]
     Active Substance: TRANEXAMIC ACID
  19. ASMANEX [Concomitant]
     Active Substance: MOMETASONE FUROATE

REACTIONS (9)
  - Rheumatoid arthritis [Recovering/Resolving]
  - COVID-19 [Recovered/Resolved]
  - Abdominal discomfort [Not Recovered/Not Resolved]
  - Sensitivity to weather change [Not Recovered/Not Resolved]
  - Joint swelling [Not Recovered/Not Resolved]
  - Pain [Unknown]
  - Off label use [Recovered/Resolved]
  - Treatment delayed [Unknown]
  - Product distribution issue [Unknown]

NARRATIVE: CASE EVENT DATE: 20211118
